FAERS Safety Report 19885546 (Version 1)
Quarter: 2021Q3

REPORT INFORMATION
  Report Type: Report from Study
  Country: HR (occurrence: HR)
  Receive Date: 20210927
  Receipt Date: 20210927
  Transmission Date: 20211014
  Serious: Yes (Hospitalization)
  Sender: FDA-Public Use
  Company Number: HR-CELGENEUS-HRV-20210903957

PATIENT
  Age: 47 Year
  Sex: Male
  Weight: 66 kg

DRUGS (1)
  1. OZANIMOD. [Suspect]
     Active Substance: OZANIMOD
     Indication: CROHN^S DISEASE
     Dosage: .92 MILLIGRAM
     Route: 048
     Dates: end: 20210913

REACTIONS (1)
  - Abdominal abscess [Unknown]

NARRATIVE: CASE EVENT DATE: 20210914
